FAERS Safety Report 5404718-3 (Version None)
Quarter: 2007Q3

REPORT INFORMATION
  Report Type: 
  Country: None (occurrence: None)
  Receive Date: 20070801
  Receipt Date: 20070723
  Transmission Date: 20080115
  Serious: Yes (Hospitalization, Other)
  Sender: FDA-Public Use
  Company Number: 2007-02499

PATIENT
  Age: 62 Year

DRUGS (7)
  1. VELCADE [Suspect]
     Indication: MULTIPLE MYELOMA
  2. DOXORUBICIN HCL [Suspect]
     Indication: MULTIPLE MYELOMA
  3. DEXAMETHASONE [Suspect]
     Indication: MULTIPLE MYELOMA
  4. ACCUPRIL [Concomitant]
  5. OMEPRAZOLE [Concomitant]
  6. CIPRO [Concomitant]
  7. ACYCLOVIR [Concomitant]

REACTIONS (2)
  - MONOPARESIS [None]
  - PNEUMONIA CYTOMEGALOVIRAL [None]
